FAERS Safety Report 15219958 (Version 3)
Quarter: 2018Q3

REPORT INFORMATION
  Report Type: Report from Study
  Country: None (occurrence: US)
  Receive Date: 20180731
  Receipt Date: 20180918
  Transmission Date: 20181010
  Serious: Yes (Other)
  Sender: FDA-Public Use
  Company Number: US-ABBVIE-17K-163-2043777-00

PATIENT
  Age: 37 Year
  Sex: Female

DRUGS (2)
  1. HUMIRA [Suspect]
     Active Substance: ADALIMUMAB
     Indication: ANKYLOSING SPONDYLITIS
     Route: 058
     Dates: start: 201601, end: 2018
  2. HUMIRA [Suspect]
     Active Substance: ADALIMUMAB
     Indication: RHEUMATOID ARTHRITIS
     Route: 058
     Dates: start: 2018

REACTIONS (15)
  - Urinary tract infection [Unknown]
  - Cartilage atrophy [Unknown]
  - Exostosis [Unknown]
  - Nausea [Unknown]
  - Weight decreased [Unknown]
  - Sensitivity to weather change [Unknown]
  - Stress [Unknown]
  - Rash macular [Recovering/Resolving]
  - Arthralgia [Unknown]
  - Chest pain [Unknown]
  - Arteriospasm coronary [Unknown]
  - Pain [Unknown]
  - Nasal septum deviation [Unknown]
  - Ankylosing spondylitis [Recovering/Resolving]
  - Psoriasis [Unknown]

NARRATIVE: CASE EVENT DATE: 20180711
